FAERS Safety Report 6924622-9 (Version None)
Quarter: 2010Q3

REPORT INFORMATION
  Report Type: 
  Country: None (occurrence: None)
  Receive Date: 20100815
  Receipt Date: 20100521
  Transmission Date: 20110219
  Serious: No
  Sender: FDA-Public Use
  Company Number: A0860854A

PATIENT
  Sex: Female

DRUGS (8)
  1. TREXIMET [Suspect]
     Indication: MIGRAINE
     Dosage: 85MG AS REQUIRED
     Route: 048
  2. MULTI-VITAMIN [Concomitant]
  3. XYMOGEN [Concomitant]
  4. IRON SUPPLEMENT [Concomitant]
  5. MAGNESIUM [Concomitant]
  6. VITAMIN D [Concomitant]
  7. GI PROTECT [Concomitant]
  8. METOPROLOL [Concomitant]

REACTIONS (1)
  - GASTROINTESTINAL DISORDER [None]
